FAERS Safety Report 20439825 (Version 1)
Quarter: 2022Q1

REPORT INFORMATION
  Report Type: Other
  Country: DE (occurrence: None)
  Receive Date: 20220207
  Receipt Date: 20220207
  Transmission Date: 20220424
  Serious: Yes (Death, Other)
  Sender: FDA-Public Use
  Company Number: DE-ROCHE-3017078

PATIENT

DRUGS (7)
  1. RITUXIMAB [Suspect]
     Active Substance: RITUXIMAB
     Indication: Diffuse large B-cell lymphoma
     Route: 065
  2. CYCLOPHOSPHAMIDE [Suspect]
     Active Substance: CYCLOPHOSPHAMIDE
     Indication: Diffuse large B-cell lymphoma
     Route: 065
  3. DOXORUBICIN [Suspect]
     Active Substance: DOXORUBICIN
     Indication: Diffuse large B-cell lymphoma
     Route: 065
  4. VINCRISTINE [Suspect]
     Active Substance: VINCRISTINE
     Indication: Diffuse large B-cell lymphoma
     Route: 065
  5. PREDNISONE [Suspect]
     Active Substance: PREDNISONE
     Indication: Diffuse large B-cell lymphoma
     Route: 065
  6. BORTEZOMIB [Suspect]
     Active Substance: BORTEZOMIB
     Indication: Diffuse large B-cell lymphoma
     Route: 065
  7. IBRUTINIB [Suspect]
     Active Substance: IBRUTINIB
     Indication: Diffuse large B-cell lymphoma
     Route: 065

REACTIONS (25)
  - Pneumonia [Fatal]
  - Acute myeloid leukaemia [Fatal]
  - Atrial fibrillation [Unknown]
  - Urinary tract infection [Unknown]
  - Platelet count decreased [Unknown]
  - Neutrophil count decreased [Unknown]
  - Lymphopenia [Unknown]
  - White blood cell count decreased [Unknown]
  - Anaemia [Unknown]
  - Nausea [Unknown]
  - Urinary retention [Unknown]
  - Febrile neutropenia [Unknown]
  - Pain [Unknown]
  - Large intestine perforation [Unknown]
  - Pyrexia [Unknown]
  - Lymphoma [Unknown]
  - Pleural effusion [Unknown]
  - Hyperuricaemia [Unknown]
  - Hypokalaemia [Unknown]
  - Gastroenteritis clostridial [Unknown]
  - Hyperglycaemia [Unknown]
  - Fatigue [Unknown]
  - Hypertension [Unknown]
  - Peripheral sensory neuropathy [Unknown]
  - Syncope [Unknown]
